FAERS Safety Report 16946001 (Version 1)
Quarter: 2019Q4

REPORT INFORMATION
  Report Type: Spontaneous
  Country: US (occurrence: US)
  Receive Date: 20191022
  Receipt Date: 20191022
  Transmission Date: 20200122
  Serious: No
  Sender: FDA-Public Use
  Company Number: US-SAMSUNG BIOEPIS-SB-2019-25033

PATIENT
  Sex: Female

DRUGS (1)
  1. RENFLEXIS [Suspect]
     Active Substance: INFLIXIMAB-ABDA
     Indication: RHEUMATOID ARTHRITIS
     Dosage: UNKNOWN
     Route: 065

REACTIONS (3)
  - Tremor [Recovering/Resolving]
  - Vomiting [Recovering/Resolving]
  - Myalgia [Recovering/Resolving]
